FAERS Safety Report 7939724-8 (Version None)
Quarter: 2011Q4

REPORT INFORMATION
  Report Type: 
  Country: None (occurrence: None)
  Receive Date: 20111125
  Receipt Date: 20111118
  Transmission Date: 20120403
  Serious: Yes (Hospitalization, Other)
  Sender: FDA-Public Use
  Company Number: PHEH2011US009791

PATIENT
  Age: 76 Year
  Sex: Female
  Weight: 58.05 kg

DRUGS (1)
  1. ZOMETA [Suspect]
     Indication: MULTIPLE MYELOMA
     Dosage: 8 MG, ONCE 28 DAYS
     Dates: start: 20070618, end: 20110808

REACTIONS (7)
  - VOMITING [None]
  - HAEMOGLOBIN DECREASED [None]
  - BLOOD UREA INCREASED [None]
  - DIARRHOEA [None]
  - COLITIS [None]
  - BLOOD SODIUM DECREASED [None]
  - NAUSEA [None]
